FAERS Safety Report 7508665-2 (Version None)
Quarter: 2011Q2

REPORT INFORMATION
  Report Type: 
  Country: None (occurrence: None)
  Receive Date: 20110527
  Receipt Date: 20100513
  Transmission Date: 20111010
  Serious: No
  Sender: FDA-Public Use
  Company Number: A0859574A

PATIENT
  Age: 51 Year
  Sex: Female

DRUGS (5)
  1. ADVAIR DISKUS 100/50 [Concomitant]
  2. VENTOLIN [Suspect]
     Indication: ASTHMA
     Dosage: 2PUFF PER DAY
     Route: 055
     Dates: start: 20090101
  3. SINGULAIR [Concomitant]
  4. DEXAMETHASONE [Concomitant]
  5. ALBUTEROL [Concomitant]

REACTIONS (2)
  - PRODUCT QUALITY ISSUE [None]
  - DRUG INEFFECTIVE [None]
